FAERS Safety Report 4689099-5 (Version None)
Quarter: 2005Q2

REPORT INFORMATION
  Report Type: 
  Country: None (occurrence: None)
  Receive Date: 20050613
  Receipt Date: 20050316
  Transmission Date: 20051028
  Serious: Yes (Other)
  Sender: FDA-Public Use
  Company Number: PHBS2005FI03912

PATIENT
  Age: 69 Year
  Sex: Male

DRUGS (4)
  1. ZOLADEX [Concomitant]
     Indication: PROSTATE CANCER
     Dosage: UNK, UNK
     Route: 065
     Dates: start: 20050207
  2. ATACAND [Concomitant]
     Indication: HYPERTENSION
     Dosage: 8 MG/D
     Route: 065
  3. DIFORMIN RETARD [Concomitant]
     Indication: DIABETES MELLITUS
     Dosage: 2 G/D
     Route: 065
  4. ZOMETA [Suspect]
     Indication: PROSTATE CANCER
     Dosage: 4 MG, ONCE/SINGLE
     Route: 042
     Dates: start: 20050207, end: 20050207

REACTIONS (10)
  - ARRHYTHMIA [None]
  - ARTHRALGIA [None]
  - C-REACTIVE PROTEIN INCREASED [None]
  - CHEST PAIN [None]
  - DYSURIA [None]
  - MOVEMENT DISORDER [None]
  - PATHOLOGICAL FRACTURE [None]
  - POLLAKIURIA [None]
  - PYREXIA [None]
  - URINARY TRACT INFECTION [None]
